FAERS Safety Report 10102906 (Version 2)
Quarter: 2014Q2

REPORT INFORMATION
  Report Type: Report from Study
  Country: US (occurrence: US)
  Receive Date: 20140424
  Receipt Date: 20140516
  Transmission Date: 20141212
  Serious: Yes (Death)
  Sender: FDA-Public Use
  Company Number: GXBR2014US001136

PATIENT
  Age: 56 Year
  Sex: Male
  Weight: 90.93 kg

DRUGS (17)
  1. ENOXAPARIN SODIUM [Suspect]
     Indication: PULMONARY EMBOLISM
     Dosage: 150 MG, QD
     Route: 058
     Dates: start: 20130604
  2. ENOXAPARIN SODIUM [Suspect]
     Indication: DEEP VEIN THROMBOSIS
     Dosage: 100 MG, BID
     Route: 058
     Dates: start: 20130507, end: 20130603
  3. LANSOPRAZOLE [Concomitant]
     Dosage: 30 MG, QD
     Route: 048
  4. OMEPRAZOLE [Concomitant]
     Dosage: 20 MG, BID
     Route: 048
  5. OMEPRAZOLE [Concomitant]
     Dosage: 20 MG, QD
     Route: 048
  6. RANITIDINE [Concomitant]
     Dosage: 150 MG, BID
     Route: 048
  7. HYZAAR [Concomitant]
     Indication: BLOOD PRESSURE
     Dosage: 50MG LOSARTAN; 12.5MG HCTZ, QD
     Route: 048
  8. CENTRUM [Concomitant]
     Dosage: 1 DF, QD
     Route: 048
  9. ZOFRAN [Concomitant]
     Indication: NAUSEA
     Dosage: 8 MG, Q12H PRN
     Route: 048
  10. PROCHLORPERAZINE MALEATE [Concomitant]
     Indication: NAUSEA
     Dosage: 10 MG, Q6H PRN
     Route: 048
  11. PROCHLORPERAZINE MALEATE [Concomitant]
     Indication: VOMITING
  12. DOCUSATE SODIUM [Concomitant]
     Dosage: 100 MG, QD-BID
     Route: 048
  13. SENNA [Concomitant]
     Dosage: 1 DF, QHS
  14. OXYCODONE [Concomitant]
     Indication: PAIN
     Dosage: 15 MG, Q3H PRN
     Route: 048
  15. POTASSIUM CHLORIDE [Concomitant]
     Dosage: 20 MEQ, BID
     Route: 048
  16. OXYCONTIN [Concomitant]
     Dosage: 60 MG, Q8H
  17. ANUCORT-HC [Concomitant]
     Dosage: 25 MG, BID
     Route: 054

REACTIONS (9)
  - Pancreatic carcinoma metastatic [Fatal]
  - Abdominal distension [Fatal]
  - Ascites [Fatal]
  - Oedema peripheral [Fatal]
  - Jaundice [Fatal]
  - Abdominal discomfort [Fatal]
  - Chromaturia [Fatal]
  - Hypophagia [Fatal]
  - Disease progression [Fatal]
